FAERS Safety Report 7342142-7 (Version None)
Quarter: 2011Q1

REPORT INFORMATION
  Report Type: 
  Country: None (occurrence: None)
  Receive Date: 20110309
  Receipt Date: 20110301
  Transmission Date: 20110831
  Serious: Yes (Hospitalization, Disabling, Other)
  Sender: FDA-Public Use
  Company Number: US-MERCK-0604USA02026

PATIENT
  Age: 52 Year
  Sex: Female
  Weight: 62 kg

DRUGS (9)
  1. FOSAMAX [Suspect]
     Indication: OSTEOPENIA
     Route: 048
     Dates: start: 19970101, end: 20000101
  2. PROCRIT [Concomitant]
     Route: 065
  3. UROCIT-K [Concomitant]
     Indication: ELECTROLYTE SUBSTITUTION THERAPY
     Route: 065
     Dates: start: 19980601
  4. FOSAMAX [Suspect]
     Route: 048
     Dates: start: 20030101, end: 20050401
  5. BEXTRA [Concomitant]
     Route: 065
  6. FOSAMAX [Suspect]
     Route: 048
     Dates: start: 20010920, end: 20040330
  7. NEXIUM [Concomitant]
     Route: 065
  8. GASTRODIA [Concomitant]
     Route: 065
  9. PROVERA [Concomitant]
     Route: 065

REACTIONS (72)
  - INFLUENZA [None]
  - MENISCUS LESION [None]
  - WEIGHT DECREASED [None]
  - URINARY TRACT INFECTION [None]
  - SICCA SYNDROME [None]
  - SCOLIOSIS [None]
  - NEUTROPENIA [None]
  - ADRENAL MASS [None]
  - EXPOSURE TO COMMUNICABLE DISEASE [None]
  - NODULE [None]
  - OSTEONECROSIS OF JAW [None]
  - CHILLS [None]
  - VISUAL ACUITY REDUCED [None]
  - FIBROMYALGIA [None]
  - CATARACT [None]
  - DEVICE RELATED INFECTION [None]
  - TOOTH INFECTION [None]
  - TINNITUS [None]
  - SJOGREN'S SYNDROME [None]
  - SALIVARY GLAND DISORDER [None]
  - PEPTIC ULCER [None]
  - ORAL INFECTION [None]
  - MITRAL VALVE PROLAPSE [None]
  - HEADACHE [None]
  - BACK PAIN [None]
  - OSTEOMYELITIS CHRONIC [None]
  - AGEUSIA [None]
  - NAUSEA [None]
  - HAEMATEMESIS [None]
  - DRY MOUTH [None]
  - DRUG HYPERSENSITIVITY [None]
  - CARPAL TUNNEL SYNDROME [None]
  - TOOTH FRACTURE [None]
  - ABDOMINAL PAIN UPPER [None]
  - HYPOAESTHESIA [None]
  - GINGIVAL DISORDER [None]
  - ORAL DISCOMFORT [None]
  - DIARRHOEA [None]
  - DEAFNESS [None]
  - CARTILAGE INJURY [None]
  - HYPOAESTHESIA ORAL [None]
  - TOOTH ABSCESS [None]
  - RENAL CYST [None]
  - GINGIVAL BLEEDING [None]
  - FOOD INTOLERANCE [None]
  - TENOSYNOVITIS STENOSANS [None]
  - EMPYEMA [None]
  - HEPATIC ENZYME INCREASED [None]
  - TENDONITIS [None]
  - RASH [None]
  - BLOOD CHOLESTEROL INCREASED [None]
  - BRONCHITIS [None]
  - ABSCESS [None]
  - FATIGUE [None]
  - JOINT INJURY [None]
  - PAIN [None]
  - RENAL TUBULAR ACIDOSIS [None]
  - TOOTH EXTRACTION [None]
  - RASH GENERALISED [None]
  - IMPAIRED HEALING [None]
  - APHTHOUS STOMATITIS [None]
  - ANAEMIA [None]
  - BONE MARROW DISORDER [None]
  - PYREXIA [None]
  - DRUG INTOLERANCE [None]
  - NEPHROLITHIASIS [None]
  - HYPOCALCIURIA [None]
  - RASH MACULO-PAPULAR [None]
  - PSEUDOMONAS INFECTION [None]
  - SYNOVIAL CYST [None]
  - OESOPHAGEAL STENOSIS [None]
  - DENTAL CARIES [None]
